FAERS Safety Report 14630452 (Version 1)
Quarter: 2018Q1

REPORT INFORMATION
  Report Type: Spontaneous
  Country: US (occurrence: US)
  Receive Date: 20180313
  Receipt Date: 20180313
  Transmission Date: 20180509
  Serious: Yes (Other)
  Sender: FDA-Public Use
  Company Number: None

PATIENT
  Age: 73 Year
  Sex: Female
  Weight: 43.2 kg

DRUGS (6)
  1. ATENOLOL. [Concomitant]
     Active Substance: ATENOLOL
  2. XARELTO [Concomitant]
     Active Substance: RIVAROXABAN
  3. XANAX [Concomitant]
     Active Substance: ALPRAZOLAM
  4. PANTOPRAZOLE SOD DR [Suspect]
     Active Substance: PANTOPRAZOLE SODIUM
     Indication: GASTROOESOPHAGEAL REFLUX DISEASE
     Dosage: ?          QUANTITY:1 TABLET(S);?
     Route: 048
     Dates: start: 20180311, end: 20180313
  5. PREMARIN [Concomitant]
     Active Substance: ESTROGENS, CONJUGATED
  6. TUMS EX [Concomitant]
     Active Substance: CALCIUM CARBONATE

REACTIONS (4)
  - Hypoglycaemia [None]
  - Asthenia [None]
  - Gait disturbance [None]
  - Drug dose omission [None]

NARRATIVE: CASE EVENT DATE: 20180312
